FAERS Safety Report 5710039-1 (Version None)
Quarter: 2008Q2

REPORT INFORMATION
  Report Type: 
  Country: None (occurrence: None)
  Receive Date: 20080418
  Receipt Date: 20071109
  Transmission Date: 20081010
  Serious: No
  Sender: FDA-Public Use
  Company Number: US-ASTRAZENECA-2007UW19672

PATIENT
  Age: 49 Year
  Sex: Male
  Weight: 133.8 kg

DRUGS (5)
  1. METOPROLOL SUCCINATE [Suspect]
     Indication: HYPERTENSION
     Route: 048
     Dates: start: 20070801
  2. SOMA [Concomitant]
  3. VICODIN [Concomitant]
  4. CIPRO [Concomitant]
  5. ZYRTEC-D 12 HOUR [Concomitant]

REACTIONS (6)
  - BLOOD PRESSURE INADEQUATELY CONTROLLED [None]
  - FATIGUE [None]
  - FEELING ABNORMAL [None]
  - HEADACHE [None]
  - MICTURITION DISORDER [None]
  - MUSCULOSKELETAL STIFFNESS [None]
